FAERS Safety Report 9536425 (Version 1)
Quarter: 2013Q3

REPORT INFORMATION
  Report Type: Spontaneous
  Country: US (occurrence: US)
  Receive Date: 20130919
  Receipt Date: 20130919
  Transmission Date: 20140515
  Serious: No
  Sender: FDA-Public Use
  Company Number: US-009507513-1309USA008691

PATIENT
  Age: 13 Year
  Sex: Male

DRUGS (1)
  1. DEXAMETHASONE [Suspect]
     Indication: RADIATION NECROSIS
     Dosage: UNK

REACTIONS (3)
  - Skin striae [Unknown]
  - Lipids increased [Unknown]
  - Hypertension [Unknown]
